FAERS Safety Report 12713683 (Version 1)
Quarter: 2016Q3

REPORT INFORMATION
  Report Type: Spontaneous
  Country: US (occurrence: US)
  Receive Date: 20160904
  Receipt Date: 20160904
  Transmission Date: 20161109
  Serious: Yes (Death, Other)
  Sender: FDA-Public Use
  Company Number: US-CATALENT PHARMA SOLUTIONS-CAT-000060-2016

PATIENT
  Age: 38 Year
  Sex: Female

DRUGS (1)
  1. VALPROIC ACID. [Suspect]
     Active Substance: VALPROIC ACID
     Indication: PRODUCT USED FOR UNKNOWN INDICATION
     Dosage: UNK
     Route: 065

REACTIONS (5)
  - Brain oedema [Fatal]
  - Depressed level of consciousness [Unknown]
  - Ammonia increased [Unknown]
  - Confusional state [Unknown]
  - Somnolence [Unknown]
